FAERS Safety Report 5723401-8 (Version None)
Quarter: 2008Q2

REPORT INFORMATION
  Report Type: 
  Country: None (occurrence: None)
  Receive Date: 20080425
  Receipt Date: 20080422
  Transmission Date: 20081010
  Serious: Yes (Death)
  Sender: FDA-Public Use
  Company Number: URSO-2008-041

PATIENT
  Age: 67 Year
  Sex: Male

DRUGS (6)
  1. URSO (R) (URSODEOXYCHOLIC ACID) [Suspect]
     Dosage: 3 UNIT ORAL
     Route: 048
  2. CYANAMIDE LIQUIDS-WF (CYANAMIDE) [Suspect]
     Indication: ALCOHOL POISONING
     Dosage: 5 ML PO
     Route: 048
     Dates: start: 20080117, end: 20080122
  3. ALLOPURINOL [Suspect]
     Dosage: 200 DF PO
     Route: 048
  4. LASIX [Suspect]
     Dosage: 20 DF PO
     Route: 048
  5. ALDACTONE [Suspect]
     Dosage: 25 DF PO
     Route: 048
  6. ARICEPT [Suspect]
     Dosage: 5 DF PO
     Route: 048

REACTIONS (1)
  - SUBARACHNOID HAEMORRHAGE [None]
